FAERS Safety Report 22022691 (Version 4)
Quarter: 2023Q1

REPORT INFORMATION
  Report Type: Report from Study
  Country: US (occurrence: US)
  Receive Date: 20230222
  Receipt Date: 20230227
  Transmission Date: 20230418
  Serious: Yes (Death, Hospitalization)
  Sender: FDA-Public Use
  Company Number: US-MYLANLABS-2023M1018933

PATIENT
  Age: 59 Year
  Sex: Male

DRUGS (14)
  1. AMLODIPINE BESYLATE [Suspect]
     Active Substance: AMLODIPINE BESYLATE
     Dosage: UNK
     Route: 065
  2. EPINEPHRINE [Suspect]
     Active Substance: EPINEPHRINE
     Indication: Toxicity to various agents
     Dosage: UNK
     Route: 065
  3. NOREPINEPHRINE BITARTRATE [Suspect]
     Active Substance: NOREPINEPHRINE BITARTRATE
     Indication: Toxicity to various agents
     Dosage: UNK
     Route: 065
  4. SODIUM BICARBONATE [Suspect]
     Active Substance: SODIUM BICARBONATE
     Indication: Toxicity to various agents
     Dosage: UNK
     Route: 065
  5. CALCIUM CHLORIDE [Suspect]
     Active Substance: CALCIUM CHLORIDE
     Indication: Toxicity to various agents
     Dosage: UNK
     Route: 065
  6. FOMEPIZOLE [Suspect]
     Active Substance: FOMEPIZOLE
     Indication: Toxicity to various agents
     Dosage: UNK
     Route: 065
  7. THIAMINE [Suspect]
     Active Substance: THIAMINE
     Indication: Toxicity to various agents
     Dosage: UNK
     Route: 065
  8. FOLATE SODIUM [Suspect]
     Active Substance: FOLATE SODIUM
     Indication: Toxicity to various agents
     Dosage: UNK
     Route: 065
  9. INSULIN NOS [Suspect]
     Active Substance: INSULIN NOS
     Indication: Toxicity to various agents
     Dosage: UNK; HIGH-DOSE INSULIN EUGLYCEMIC THERAPY
     Route: 065
  10. FAT EMULSION NOS [Suspect]
     Active Substance: EGG PHOSPHOLIPIDS\SAFFLOWER OIL\SOYBEAN OIL
     Indication: Toxicity to various agents
     Dosage: UNK
     Route: 065
  11. METHYLENE BLUE [Suspect]
     Active Substance: METHYLENE BLUE
     Indication: Toxicity to various agents
     Dosage: UNK
     Route: 065
  12. ACETYLCYSTEINE [Suspect]
     Active Substance: ACETYLCYSTEINE
     Indication: Toxicity to various agents
     Dosage: UNK
     Route: 065
  13. PHENYLEPHRINE [Suspect]
     Active Substance: PHENYLEPHRINE HYDROCHLORIDE
     Indication: Toxicity to various agents
     Dosage: UNK
     Route: 065
  14. VASOPRESSIN [Suspect]
     Active Substance: VASOPRESSIN
     Indication: Toxicity to various agents
     Dosage: UNK
     Route: 065

REACTIONS (13)
  - Toxicity to various agents [Fatal]
  - Hypotension [Fatal]
  - Bradycardia [Fatal]
  - Electrocardiogram QRS complex prolonged [Fatal]
  - Respiratory depression [Fatal]
  - Coma [Fatal]
  - Metabolic acidosis [Fatal]
  - Anion gap [Fatal]
  - Pancreatitis [Fatal]
  - Intestinal ischaemia [Fatal]
  - Acute kidney injury [Fatal]
  - Drug ineffective for unapproved indication [Fatal]
  - Off label use [Fatal]
